FAERS Safety Report 11585184 (Version 2)
Quarter: 2017Q3

REPORT INFORMATION
  Report Type: Report from Study
  Country: US (occurrence: US)
  Receive Date: 20151001
  Receipt Date: 20170906
  Transmission Date: 20171127
  Serious: Yes (Hospitalization)
  Sender: FDA-Public Use
  Company Number: US-ACTELION-A-NJ2015-124641

PATIENT
  Age: 36 Year
  Sex: Male

DRUGS (1)
  1. OPSUMIT [Suspect]
     Active Substance: MACITENTAN
     Indication: PULMONARY HYPERTENSION
     Dosage: 10 MG, QD
     Route: 048
     Dates: start: 20151209

REACTIONS (6)
  - Sputum abnormal [Unknown]
  - Cardiac disorder [Unknown]
  - Sickle cell anaemia [Unknown]
  - Unresponsive to stimuli [Unknown]
  - Respiratory failure [Unknown]
  - Pneumonia [Unknown]

NARRATIVE: CASE EVENT DATE: 20170726
